FAERS Safety Report 9474598 (Version 1)
Quarter: 2013Q3

REPORT INFORMATION
  Report Type: Spontaneous
  Country: FR (occurrence: FR)
  Receive Date: 20130823
  Receipt Date: 20130823
  Transmission Date: 20140515
  Serious: Yes (Death)
  Sender: FDA-Public Use
  Company Number: FR-GLAXOSMITHKLINE-B0915391A

PATIENT
  Age: 84 Year
  Sex: Male

DRUGS (8)
  1. ARIXTRA [Suspect]
     Indication: ATRIAL FIBRILLATION
     Dosage: 7.5MG UNKNOWN
     Route: 058
     Dates: start: 20130712, end: 20130722
  2. PREVISCAN (FLUINDIONE) [Suspect]
     Indication: ATRIAL FIBRILLATION
     Dosage: 20MG UNKNOWN
     Route: 048
     Dates: start: 20130715, end: 20130722
  3. FLECAINE [Concomitant]
     Dosage: 10MG UNKNOWN
     Route: 065
  4. NEBIVOLOL [Concomitant]
     Dosage: 5MG UNKNOWN
     Route: 065
  5. ZANIDIP [Concomitant]
     Dosage: 10MG AT NIGHT
     Route: 065
  6. ATARAX [Concomitant]
     Dosage: 25MG UNKNOWN
     Route: 065
  7. CHONDROSULF [Concomitant]
     Route: 065
  8. CRESTOR [Concomitant]
     Dosage: 5MG AT NIGHT
     Route: 065

REACTIONS (7)
  - Haemorrhagic stroke [Fatal]
  - Dizziness [Unknown]
  - Headache [Unknown]
  - Nausea [Unknown]
  - Vomiting [Unknown]
  - Muscular weakness [Unknown]
  - Off label use [Unknown]
